FAERS Safety Report 11368520 (Version 6)
Quarter: 2016Q3

REPORT INFORMATION
  Report Type: Report from Study
  Country: RU (occurrence: RU)
  Receive Date: 20150812
  Receipt Date: 20160926
  Transmission Date: 20161109
  Serious: Yes (Hospitalization, Disabling)
  Sender: FDA-Public Use
  Company Number: RU-AMGEN-RUSCT2015017218

PATIENT
  Age: 60 Year
  Sex: Male
  Weight: 80 kg

DRUGS (9)
  1. LOZAP [Concomitant]
     Active Substance: LOSARTAN
     Dosage: 25 MG, UNK
     Route: 048
     Dates: start: 2009, end: 20160320
  2. METYPRED [Concomitant]
     Active Substance: METHYLPREDNISOLONE
     Dosage: 6 MG, UNK
     Route: 048
     Dates: start: 1981, end: 20160315
  3. ACTRAPID [Concomitant]
     Active Substance: INSULIN HUMAN
     Dosage: 6 UNK, UNK
     Route: 058
     Dates: start: 201005, end: 20160321
  4. CARDIOMAGNYL [Concomitant]
     Active Substance: ASPIRIN\MAGNESIUM HYDROXIDE
     Dosage: 75 MG, UNK
     Route: 048
     Dates: start: 2009, end: 20150314
  5. VEROSPIRON [Concomitant]
     Active Substance: SPIRONOLACTONE
     Dosage: 25 MG, UNK
     Route: 048
     Dates: start: 2012
  6. SYMBICORT [Concomitant]
     Active Substance: BUDESONIDE\FORMOTEROL FUMARATE DIHYDRATE
     Dosage: 2 UNK, UNK
     Route: 055
     Dates: start: 2008, end: 20160320
  7. DILTIAZEM. [Concomitant]
     Active Substance: DILTIAZEM
     Dosage: 360 MG, UNK
     Route: 048
     Dates: start: 201401, end: 20160320
  8. DENOSUMAB [Suspect]
     Active Substance: DENOSUMAB
     Indication: OSTEOPOROSIS
     Dosage: UNK
     Route: 065
     Dates: start: 20140626, end: 20151223
  9. CALCIUM D3 NYCOMED [Concomitant]
     Dosage: 1 UNK, UNK
     Route: 048
     Dates: start: 2006, end: 20160320

REACTIONS (1)
  - Femur fracture [Recovered/Resolved]

NARRATIVE: CASE EVENT DATE: 20150223
